FAERS Safety Report 16313797 (Version 2)
Quarter: 2019Q3

REPORT INFORMATION
  Report Type: Report from Study
  Country: IT (occurrence: IT)
  Receive Date: 20190515
  Receipt Date: 20190701
  Transmission Date: 20191004
  Serious: Yes (Hospitalization, Other)
  Sender: FDA-Public Use
  Company Number: IT-PFIZER INC-2019203799

PATIENT
  Age: 63 Year
  Sex: Male
  Weight: 75 kg

DRUGS (8)
  1. LUMIGAN [Concomitant]
     Active Substance: BIMATOPROST
     Dosage: 1 GTT, 1X/DAY (1 DROP LEFT EYE)
     Route: 050
     Dates: start: 2013
  2. ABASAGLAR [Concomitant]
     Active Substance: INSULIN GLARGINE
     Dosage: 20 MG, 1X/DAY
     Route: 048
     Dates: start: 20190208
  3. METFORMIN [Concomitant]
     Active Substance: METFORMIN HYDROCHLORIDE
     Dosage: 1700 MG, 1X/DAY
     Route: 048
     Dates: start: 20190208
  4. NOVORAPID [Concomitant]
     Active Substance: INSULIN ASPART
     Dosage: 20 IU, 1X/DAY
     Route: 050
     Dates: start: 20190208
  5. GEMCITABINE HYDROCHLORIDE. [Suspect]
     Active Substance: GEMCITABINE HYDROCHLORIDE
     Indication: DUCTAL ADENOCARCINOMA OF PANCREAS
     Dosage: UNK (MG/MQ/EV)
     Route: 065
     Dates: start: 20190104, end: 20190304
  6. KETOPROFEN. [Concomitant]
     Active Substance: KETOPROFEN
     Dosage: UNK
     Route: 048
  7. ABRAXANE [Suspect]
     Active Substance: PACLITAXEL
     Indication: DUCTAL ADENOCARCINOMA OF PANCREAS
     Dosage: 124 (MG/MQ/EV)
     Route: 041
     Dates: start: 20190104, end: 20190304
  8. HYALISTIL [Concomitant]
     Dosage: 3 GTT, 1X/DAY (RIGHT EYE ONLY)
     Route: 050
     Dates: start: 20190218

REACTIONS (4)
  - Presyncope [Recovered/Resolved]
  - Melaena [Recovered/Resolved]
  - Platelet count decreased [Recovered/Resolved]
  - Anaemia [Recovered/Resolved]

NARRATIVE: CASE EVENT DATE: 20190309
